FAERS Safety Report 6452669-8 (Version None)
Quarter: 2009Q4

REPORT INFORMATION
  Report Type: 
  Country: None (occurrence: None)
  Receive Date: 20091116
  Receipt Date: 20091103
  Transmission Date: 20100525
  Serious: Yes (Death, Hospitalization)
  Sender: FDA-Public Use
  Company Number: 8054299

PATIENT
  Age: 25 Year
  Sex: Male

DRUGS (1)
  1. PREDNISOLONE [Suspect]

REACTIONS (9)
  - FACIAL PALSY [None]
  - GENERAL PHYSICAL HEALTH DETERIORATION [None]
  - LOSS OF CONSCIOUSNESS [None]
  - LUNG INFILTRATION [None]
  - MENINGITIS BACTERIAL [None]
  - NOCARDIOSIS [None]
  - NYSTAGMUS [None]
  - PETECHIAE [None]
  - RESPIRATORY DISTRESS [None]
